FAERS Safety Report 8615700-7 (Version None)
Quarter: 2012Q3

REPORT INFORMATION
  Report Type: 
  Country: None (occurrence: None)
  Receive Date: 20120823
  Receipt Date: 20120813
  Transmission Date: 20120928
  Serious: Yes (Hospitalization, Other)
  Sender: FDA-Public Use
  Company Number: US-ELI_LILLY_AND_COMPANY-US201110006796

PATIENT
  Sex: Female
  Weight: 84.807 kg

DRUGS (20)
  1. CITALOPRAM HYDROBROMIDE [Concomitant]
  2. FORTEO [Suspect]
     Dosage: 20 UG, QD
     Route: 058
     Dates: start: 20120301
  3. FORTEO [Suspect]
     Dosage: 20 UG, QD
     Route: 058
     Dates: start: 20120301, end: 20120426
  4. FORTEO [Suspect]
     Indication: OSTEOPOROSIS
     Dosage: 20 UG, QD
     Route: 058
     Dates: start: 20110701
  5. ZOLPIDEM [Concomitant]
  6. DAYPRO [Concomitant]
  7. VICODIN [Concomitant]
  8. POTASSIUM [Concomitant]
  9. DULOXETINE HYDROCHLORIDE [Concomitant]
     Dosage: 60 MG, QD
  10. FISH OIL [Concomitant]
  11. M.V.I. [Concomitant]
  12. FORTEO [Suspect]
     Dosage: 20 UG, QD
     Route: 058
     Dates: start: 20110901, end: 20120108
  13. PRAVASTATIN [Concomitant]
  14. FUROSEMIDE [Concomitant]
  15. HYDROXYZINE HYDROCHLORIDE [Concomitant]
  16. LEVOTHYROXINE SODIUM [Concomitant]
     Dosage: UNK
  17. FORTEO [Suspect]
     Dosage: 20 UG, QD
     Route: 058
     Dates: start: 20120801
  18. NORTRIPTYLINE [Concomitant]
  19. XANAX [Concomitant]
  20. CALCIUM W/VITAMIN D NOS [Concomitant]

REACTIONS (12)
  - BACK PAIN [None]
  - UROSEPSIS [None]
  - JOINT INJURY [None]
  - SLEEP DISORDER DUE TO A GENERAL MEDICAL CONDITION [None]
  - JOINT SWELLING [None]
  - ARTHRALGIA [None]
  - CHOLECYSTITIS INFECTIVE [None]
  - DISORIENTATION [None]
  - BONE PAIN [None]
  - CYSTITIS [None]
  - PAIN [None]
  - FALL [None]
